FAERS Safety Report 25599960 (Version 1)
Quarter: 2025Q3

REPORT INFORMATION
  Report Type: Spontaneous
  Country: EU (occurrence: EU)
  Receive Date: 20250724
  Receipt Date: 20250724
  Transmission Date: 20251021
  Serious: Yes (Hospitalization, Other)
  Sender: ALKEM
  Company Number: EU-ALKEM LABORATORIES LIMITED-ES-ALKEM-2024-23014

PATIENT
  Age: 76 Year
  Sex: Male

DRUGS (5)
  1. ITRACONAZOLE [Suspect]
     Active Substance: ITRACONAZOLE
     Indication: Aspergillus infection
     Dosage: 400 MILLIGRAM, QD
     Route: 065
  2. ITRACONAZOLE [Suspect]
     Active Substance: ITRACONAZOLE
     Dosage: 200 MILLIGRAM, BID (EVERY 12 HOUR)
     Route: 048
  3. CEFDITOREN [Concomitant]
     Active Substance: CEFDITOREN
     Indication: Bronchopulmonary aspergillosis
     Dosage: 400 MILLIGRAM, BID (EVERY 12 H FOR 7 DAYS)
     Route: 065
  4. LEVOFLOXACIN [Concomitant]
     Active Substance: LEVOFLOXACIN
     Indication: Aspergillus infection
     Dosage: 500 MILLIGRAM, QD (EVERY 24 H FOR 7 DAYS)
     Route: 065
  5. UNSPECIFIED INGREDIENT [Concomitant]
     Active Substance: UNSPECIFIED INGREDIENT
     Indication: Bronchopulmonary aspergillosis
     Route: 065

REACTIONS (1)
  - Cardiac failure congestive [Recovered/Resolved]
